FAERS Safety Report 6934769-9 (Version None)
Quarter: 2010Q3

REPORT INFORMATION
  Report Type: 
  Country: None (occurrence: None)
  Receive Date: 20100820
  Receipt Date: 20100804
  Transmission Date: 20110219
  Serious: Yes (Other)
  Sender: FDA-Public Use
  Company Number: GXKR2010PL08756

PATIENT
  Age: 52 Year
  Sex: Male

DRUGS (11)
  1. AZATHIOPRINE SODIUM [Suspect]
     Indication: PEMPHIGUS
     Dosage: 150 MG/DAY
     Route: 065
  2. PREDNISOLONE (NGX) [Suspect]
     Indication: PEMPHIGUS
     Dosage: 0.8 MG/KG BODYWEIGHT/DAY
     Route: 065
  3. PREDNISOLONE (NGX) [Suspect]
     Dosage: 60 MG/DAY
     Route: 065
  4. PREDNISOLONE (NGX) [Suspect]
     Dosage: REDUCTION BY 5 MG DAILY EVERY OTHER DAY
     Route: 065
  5. NADROPARIN CALCIUM [Suspect]
     Indication: PERIPHERAL ISCHAEMIA
     Dosage: 1 ML/9500 M.U./ML, BID
     Route: 065
  6. CORTICOSTEROIDS [Concomitant]
  7. ANTIBIOTICS [Concomitant]
  8. SILICONE PRODUCTS [Concomitant]
  9. VANCOMYCIN [Concomitant]
     Indication: EXTRADURAL ABSCESS
     Route: 065
  10. CIPROFLOXACIN [Concomitant]
     Indication: EXTRADURAL ABSCESS
     Route: 065
  11. CLOXACILLIN [Concomitant]
     Indication: EXTRADURAL ABSCESS
     Route: 065

REACTIONS (9)
  - COUGH [None]
  - HAEMORRHAGIC STROKE [None]
  - HEADACHE [None]
  - PERIPHERAL ISCHAEMIA [None]
  - PNEUMONIA [None]
  - PYREXIA [None]
  - TINNITUS [None]
  - VERTIGO [None]
  - VISUAL IMPAIRMENT [None]
